FAERS Safety Report 10749712 (Version 1)
Quarter: 2015Q1

REPORT INFORMATION
  Report Type: Spontaneous
  Country: US (occurrence: US)
  Receive Date: 20150129
  Receipt Date: 20150129
  Transmission Date: 20150721
  Serious: No
  Sender: FDA-Public Use
  Company Number: US-PFIZER INC-2015029934

PATIENT
  Age: 60 Year
  Sex: Female
  Weight: 64 kg

DRUGS (4)
  1. AMLODIPINE [Concomitant]
     Active Substance: AMLODIPINE BESYLATE
  2. ATORVASTATIN [Concomitant]
     Active Substance: ATORVASTATIN
  3. PERIDEX [Concomitant]
     Active Substance: CHLORHEXIDINE GLUCONATE
  4. ADVIL [Suspect]
     Active Substance: IBUPROFEN
     Indication: GINGIVAL PAIN
     Dosage: 200 MG , EVERY FEW HOURS

REACTIONS (7)
  - Gingival swelling [Not Recovered/Not Resolved]
  - Lip swelling [Not Recovered/Not Resolved]
  - Overdose [Unknown]
  - Gingivitis [Unknown]
  - Gingival pain [Unknown]
  - Aphthous stomatitis [Unknown]
  - Oral pain [Unknown]

NARRATIVE: CASE EVENT DATE: 201501
